FAERS Safety Report 12579110 (Version 1)
Quarter: 2016Q3

REPORT INFORMATION
  Report Type: Spontaneous
  Country: None (occurrence: US)
  Receive Date: 20160721
  Receipt Date: 20160721
  Transmission Date: 20161109
  Serious: No
  Sender: FDA-Public Use
  Company Number: US-TRIS PHARMA, INC.-1055336

PATIENT
  Age: 26 Year
  Sex: Male
  Weight: 72.27 kg

DRUGS (2)
  1. DEXTROMETHORPHAN POLISTIREX ER OS 6 MG/ML [Suspect]
     Active Substance: DEXTROMETHORPHAN HYDROBROMIDE
     Indication: COUGH
     Route: 048
     Dates: end: 20151224
  2. DIPHENHYDRAMINE HCL [Concomitant]
     Active Substance: DIPHENHYDRAMINE HYDROCHLORIDE
     Dates: start: 201512

REACTIONS (7)
  - Nausea [None]
  - Exposure to noise [None]
  - Hot flush [None]
  - Photophobia [None]
  - Diarrhoea [None]
  - Dizziness [None]
  - Feeling abnormal [None]
